FAERS Safety Report 6328140-0 (Version None)
Quarter: 2009Q3

REPORT INFORMATION
  Report Type: 
  Country: None (occurrence: None)
  Receive Date: 20090825
  Receipt Date: 20081117
  Transmission Date: 20100115
  Serious: No
  Sender: FDA-Public Use
  Company Number: US-ABBOTT-08P-163-0488197-00

PATIENT
  Sex: Female
  Weight: 90.8 kg

DRUGS (1)
  1. SYNTHROID [Suspect]
     Indication: THYROID DISORDER
     Dosage: MCG
     Route: 048
     Dates: start: 20051201, end: 20060101

REACTIONS (4)
  - EYE DISORDER [None]
  - NASAL DRYNESS [None]
  - SINUS DISORDER [None]
  - SLUGGISHNESS [None]
